FAERS Safety Report 7477129-7 (Version None)
Quarter: 2011Q2

REPORT INFORMATION
  Report Type: 
  Country: None (occurrence: None)
  Receive Date: 20110512
  Receipt Date: 20110126
  Transmission Date: 20111010
  Serious: No
  Sender: FDA-Public Use
  Company Number: US-NOVEN-11US001673

PATIENT
  Age: 7 Year
  Sex: Male
  Weight: 18.141 kg

DRUGS (1)
  1. DAYTRANA [Suspect]
     Indication: ATTENTION DEFICIT/HYPERACTIVITY DISORDER
     Dosage: 10 MG, 1X/DAY: QD
     Route: 062
     Dates: start: 20110115

REACTIONS (7)
  - DECREASED APPETITE [None]
  - DRUG ADMINISTRATION ERROR [None]
  - PSYCHOMOTOR HYPERACTIVITY [None]
  - INCORRECT DRUG ADMINISTRATION DURATION [None]
  - INITIAL INSOMNIA [None]
  - APPLICATION SITE ERYTHEMA [None]
  - DRUG INEFFECTIVE [None]
